FAERS Safety Report 5361886-X (Version None)
Quarter: 2007Q2

REPORT INFORMATION
  Report Type: 
  Country: None (occurrence: None)
  Receive Date: 20070619
  Receipt Date: 20070614
  Transmission Date: 20071010
  Serious: Yes (Hospitalization)
  Sender: FDA-Public Use
  Company Number: US-AMGEN-US228105

PATIENT
  Sex: Female

DRUGS (10)
  1. PANITUMUMAB [Suspect]
     Indication: COLORECTAL CANCER
     Route: 042
     Dates: start: 20070525
  2. AMIODARONE HCL [Concomitant]
     Route: 065
  3. DILTIAZEM [Concomitant]
     Route: 065
  4. SYNTHROID [Concomitant]
     Route: 065
  5. MAGNESIUM OXIDE [Concomitant]
     Route: 065
  6. HYDROCHLOROTHIAZIDE [Concomitant]
     Route: 065
  7. DARVOCET [Concomitant]
     Route: 065
  8. IRINOTECAN HCL [Concomitant]
     Route: 065
  9. LEUCOVORIN CALCIUM [Concomitant]
     Route: 065
  10. FLUOROURACIL [Concomitant]
     Route: 065

REACTIONS (1)
  - SEPSIS [None]
